FAERS Safety Report 6940425-3 (Version None)
Quarter: 2010Q3

REPORT INFORMATION
  Report Type: 
  Country: None (occurrence: None)
  Receive Date: 20100825
  Receipt Date: 20100812
  Transmission Date: 20110219
  Serious: Yes (Hospitalization, Other)
  Sender: FDA-Public Use
  Company Number: PHHY2010BR53021

PATIENT
  Sex: Female

DRUGS (4)
  1. DIOVAN HCT [Suspect]
     Dosage: 160/12.5 MG,UNK
  2. ATENOLOL [Suspect]
     Dosage: 50 MG, UNK
  3. AMLODIPINE [Suspect]
  4. BROMAZEPAM [Suspect]
     Dosage: 6 OR 3 MG, UNK

REACTIONS (10)
  - CARDIAC ARREST [None]
  - CATHETER PLACEMENT [None]
  - CEREBROVASCULAR ACCIDENT [None]
  - CHEST PAIN [None]
  - FEELING ABNORMAL [None]
  - GASTRIC DISORDER [None]
  - HYPERTENSION [None]
  - INSOMNIA [None]
  - NEPHROLITHIASIS [None]
  - RENAL STONE REMOVAL [None]
